FAERS Safety Report 4584683-1 (Version None)
Quarter: 2005Q1

REPORT INFORMATION
  Report Type: 
  Country: None (occurrence: None)
  Receive Date: 20050211
  Receipt Date: 20050129
  Transmission Date: 20050727
  Serious: Yes (Hospitalization, Other)
  Sender: FDA-Public Use
  Company Number: 2005014879

PATIENT
  Sex: Male

DRUGS (3)
  1. BEXTRA [Suspect]
     Indication: ARTHRALGIA
     Dosage: 20 MG (20 MG, 1 N 1 D), ORAL
     Route: 048
     Dates: end: 20030101
  2. CELEBREX [Suspect]
     Indication: ARTHRALGIA
     Dosage: 200 MG, (20 MG, 1 IN 1 D), ORAL
     Route: 048
     Dates: start: 20040228, end: 20040101
  3. ROFECOXIB [Concomitant]

REACTIONS (9)
  - ABDOMINAL PAIN UPPER [None]
  - ARTHRALGIA [None]
  - CEREBROVASCULAR ACCIDENT [None]
  - CONDITION AGGRAVATED [None]
  - CONSTIPATION [None]
  - DEPRESSION [None]
  - EATING DISORDER [None]
  - GASTRIC DISORDER [None]
  - SUICIDAL IDEATION [None]
